FAERS Safety Report 4732091-2 (Version None)
Quarter: 2005Q3

REPORT INFORMATION
  Report Type: 
  Country: None (occurrence: None)
  Receive Date: 20050721
  Receipt Date: 20050408
  Transmission Date: 20060218
  Serious: No
  Sender: FDA-Public Use
  Company Number: 2005SP000119

PATIENT
  Age: 36 Year
  Sex: Female

DRUGS (7)
  1. LUNESTA [Suspect]
     Indication: INSOMNIA
     Dosage: 3 MG;HS;ORAL
     Route: 048
     Dates: start: 20050407
  2. CELEXA [Concomitant]
  3. LEVOTHROID [Concomitant]
  4. XANAX [Concomitant]
  5. TRAZADONE [Concomitant]
  6. AMBIEN [Concomitant]
  7. LEVOTHROID [Concomitant]

REACTIONS (1)
  - TINNITUS [None]
